FAERS Safety Report 7395078-X (Version None)
Quarter: 2011Q2

REPORT INFORMATION
  Report Type: 
  Country: None (occurrence: None)
  Receive Date: 20110405
  Receipt Date: 20110324
  Transmission Date: 20111010
  Serious: Yes (Hospitalization)
  Sender: FDA-Public Use
  Company Number: NL-MEDIMMUNE-MEDI-0012772

PATIENT
  Sex: Male
  Weight: 0.44 kg

DRUGS (2)
  1. SYNAGIS [Suspect]
     Route: 030
     Dates: start: 20110125, end: 20110125
  2. SYNAGIS [Suspect]
     Route: 030
     Dates: start: 20101228, end: 20101228

REACTIONS (5)
  - OXYGEN SATURATION DECREASED [None]
  - VOMITING [None]
  - ROTAVIRUS INFECTION [None]
  - GASTROENTERITIS NOROVIRUS [None]
  - RESPIRATORY SYNCYTIAL VIRUS TEST POSITIVE [None]
